FAERS Safety Report 5332455-2 (Version None)
Quarter: 2007Q2

REPORT INFORMATION
  Report Type: 
  Country: None (occurrence: None)
  Receive Date: 20070523
  Receipt Date: 20070516
  Transmission Date: 20071010
  Serious: Yes (Other)
  Sender: FDA-Public Use
  Company Number: BR-ASTRAZENECA-2007UW07553

PATIENT
  Age: 39 Year
  Sex: Female
  Weight: 55.4 kg

DRUGS (2)
  1. NOLVADEX [Suspect]
     Indication: BREAST CANCER
     Route: 048
     Dates: start: 20060901, end: 20070419
  2. NOLVADEX [Suspect]
     Route: 048
     Dates: start: 20070507

REACTIONS (9)
  - ABDOMINAL DISTENSION [None]
  - BLOOD CALCIUM DECREASED [None]
  - COAGULOPATHY [None]
  - COELIAC DISEASE [None]
  - COLITIS [None]
  - DIARRHOEA [None]
  - HYPOPARATHYROIDISM [None]
  - TETANY [None]
  - WEIGHT DECREASED [None]
